FAERS Safety Report 19717471 (Version 2)
Quarter: 2021Q3

REPORT INFORMATION
  Report Type: Spontaneous
  Country: EG (occurrence: EG)
  Receive Date: 20210818
  Receipt Date: 20210825
  Transmission Date: 20211014
  Serious: Yes (Life-Threatening, Hospitalization, Disabling)
  Sender: FDA-Public Use
  Company Number: EG-NOVOPROD-837452

PATIENT
  Age: 644 Month
  Sex: Male
  Weight: 100 kg

DRUGS (4)
  1. ATOR [Concomitant]
     Active Substance: ATORVASTATIN CALCIUM
     Indication: BLOOD CHOLESTEROL ABNORMAL
     Dosage: ONCE DAILY / ONST DATE : 10 DAYS AGO
     Route: 048
  2. MIXTARD 30 HM PENFILL [Suspect]
     Active Substance: INSULIN HUMAN
     Dosage: 80 IU, QD (40IU AM+ 40IU PM )
     Route: 058
  3. MIXTARD 30 HM PENFILL [Suspect]
     Active Substance: INSULIN HUMAN
     Indication: DIABETES MELLITUS
     Dosage: 50 IU, QD (25IU AM+25IU PM )
     Route: 058
  4. CIDOPHAGE [Concomitant]
     Indication: DIABETES MELLITUS
     Dosage: TWICE DAILY ? STARTED 20 YEARS AGO
     Route: 048

REACTIONS (3)
  - Cerebrovascular accident [Not Recovered/Not Resolved]
  - Hemiplegia [Not Recovered/Not Resolved]
  - Hypertension [Not Recovered/Not Resolved]

NARRATIVE: CASE EVENT DATE: 202003
